FAERS Safety Report 9264332 (Version 3)
Quarter: 2013Q3

REPORT INFORMATION
  Report Type: Spontaneous
  Country: IL (occurrence: IL)
  Receive Date: 20130430
  Receipt Date: 20130813
  Transmission Date: 20140515
  Serious: Yes (Other)
  Sender: FDA-Public Use
  Company Number: IL-ALLERGAN-1305868US

PATIENT
  Age: 54 Year
  Sex: Male

DRUGS (2)
  1. OZURDEX [Suspect]
     Indication: INTERMEDIATE UVEITIS
     Dosage: 0.7 MG, SINGLE
     Dates: start: 20130213
  2. OZURDEX [Suspect]
     Dosage: UNK

REACTIONS (2)
  - Cataract [Unknown]
  - Complication of device insertion [Not Recovered/Not Resolved]
